FAERS Safety Report 22781014 (Version 2)
Quarter: 2024Q1

REPORT INFORMATION
  Report Type: Report from Study
  Country: CA (occurrence: None)
  Receive Date: 20230803
  Receipt Date: 20240221
  Transmission Date: 20240409
  Serious: Yes (Other)
  Sender: FDA-Public Use
  Company Number: CA-PFIZER INC-202300263028

PATIENT
  Age: 70 Year
  Sex: Female

DRUGS (25)
  1. METHOTREXATE [Suspect]
     Active Substance: METHOTREXATE
     Indication: Product used for unknown indication
  2. METHOTREXATE [Suspect]
     Active Substance: METHOTREXATE
  3. ZOLEDRONIC ACID [Suspect]
     Active Substance: ZOLEDRONIC ACID
     Indication: Product used for unknown indication
  4. DESOXIMETASONE [Suspect]
     Active Substance: DESOXIMETASONE
     Indication: Product used for unknown indication
  5. DESOXIMETASONE [Suspect]
     Active Substance: DESOXIMETASONE
  6. DESOXIMETASONE [Suspect]
     Active Substance: DESOXIMETASONE
  7. ACTEMRA [Concomitant]
     Active Substance: TOCILIZUMAB
  8. BOTOX [Concomitant]
     Active Substance: ONABOTULINUMTOXINA
  9. CYCLOSPORINE [Concomitant]
     Active Substance: CYCLOSPORINE
  10. CYCLOSPORINE [Concomitant]
     Active Substance: CYCLOSPORINE
  11. ENBREL [Concomitant]
     Active Substance: ETANERCEPT
  12. ORENCIA [Concomitant]
     Active Substance: ABATACEPT
  13. PILOCARPINE [Concomitant]
     Active Substance: PILOCARPINE
  14. PREDNISONE [Concomitant]
     Active Substance: PREDNISONE
  15. SALAGEN [Concomitant]
     Active Substance: PILOCARPINE HYDROCHLORIDE
  16. SALAGEN [Concomitant]
     Active Substance: PILOCARPINE HYDROCHLORIDE
  17. SULFASALAZINE [Concomitant]
     Active Substance: SULFASALAZINE
  18. SULFATRIM [Concomitant]
     Active Substance: SULFAMETHOXAZOLE\TRIMETHOPRIM
  19. SYNTHROID [Concomitant]
     Active Substance: LEVOTHYROXINE SODIUM
  20. TRAZODONE [Concomitant]
     Active Substance: TRAZODONE HYDROCHLORIDE
  21. TREHALOSE [Concomitant]
     Active Substance: TREHALOSE
  22. TYLENOL [Concomitant]
     Active Substance: ACETAMINOPHEN
  23. VITAMIN D NOS [Concomitant]
     Active Substance: VITAMIN D NOS
  24. XELJANZ [Concomitant]
     Active Substance: TOFACITINIB CITRATE
  25. ERGOCALCIFEROL [Concomitant]
     Active Substance: ERGOCALCIFEROL

REACTIONS (14)
  - Arthralgia [Unknown]
  - Bicytopenia [Unknown]
  - Bronchial wall thickening [Unknown]
  - Bronchiectasis [Unknown]
  - Calcification of muscle [Unknown]
  - Condition aggravated [Unknown]
  - Dysphagia [Unknown]
  - Fatigue [Unknown]
  - Felty^s syndrome [Unknown]
  - Lung disorder [Unknown]
  - Malaise [Unknown]
  - Myalgia [Unknown]
  - Osteoporosis [Unknown]
  - Pneumonia [Unknown]
